FAERS Safety Report 14457950 (Version 1)
Quarter: 2018Q1

REPORT INFORMATION
  Report Type: Spontaneous
  Country: RO (occurrence: RO)
  Receive Date: 20180130
  Receipt Date: 20180130
  Transmission Date: 20180509
  Serious: Yes (Other)
  Sender: FDA-Public Use
  Company Number: RO-MYLANLABS-2018M1005005

PATIENT
  Age: 69 Year
  Sex: Male

DRUGS (3)
  1. METRONIDAZOLE. [Suspect]
     Active Substance: METRONIDAZOLE
     Indication: CLOSTRIDIUM DIFFICILE INFECTION
     Dosage: 500 MG, 3X/DAY (EVERY 8 HOURS)
  2. VANCOMYCIN [Suspect]
     Active Substance: VANCOMYCIN
     Dosage: 2000 MG, QD
     Route: 048
  3. VANCOMYCIN [Suspect]
     Active Substance: VANCOMYCIN
     Indication: CLOSTRIDIUM DIFFICILE INFECTION
     Dosage: 1000 MG, QD
     Route: 048

REACTIONS (2)
  - Drug ineffective [Recovered/Resolved]
  - No adverse event [Unknown]
